FAERS Safety Report 7607660-2 (Version None)
Quarter: 2011Q3

REPORT INFORMATION
  Report Type: 
  Country: None (occurrence: None)
  Receive Date: 20110713
  Receipt Date: 20110511
  Transmission Date: 20111222
  Serious: Yes (Other)
  Sender: FDA-Public Use
  Company Number: PHHY2011FR41434

PATIENT
  Age: 40 Year
  Sex: Male

DRUGS (8)
  1. LOXAPINE HCL [Concomitant]
  2. VALPROIC ACID [Concomitant]
  3. TRIMEPRAZINE TARTRATE [Concomitant]
  4. FORLAX [Concomitant]
  5. LEPTICUR [Concomitant]
  6. PROPRANOLOL [Concomitant]
  7. CLOZAPINE [Suspect]
     Dosage: 500 MG, QD
     Dates: start: 20100701
  8. ANDROCUR [Concomitant]

REACTIONS (3)
  - WHITE BLOOD CELL COUNT INCREASED [None]
  - INFECTION [None]
  - C-REACTIVE PROTEIN INCREASED [None]
